FAERS Safety Report 8766964 (Version 1)
Quarter: 2012Q4

REPORT INFORMATION
  Report Type: 
  Country: BR (occurrence: BR)
  Receive Date: 20120903
  Receipt Date: 20120903
  Transmission Date: 20130627
  Serious: Yes (Other)
  Sender: FDA-Public Use
  Company Number: BR-BAYER-2012-088765

PATIENT
  Sex: Female

DRUGS (1)
  1. DIENOGEST\ESTRADIOL VALERATE [Suspect]
     Dosage: UNK
     Route: 048
     Dates: start: 201203

REACTIONS (5)
  - Urinary tract infection [None]
  - Premenstrual syndrome [Not Recovered/Not Resolved]
  - Panic reaction [Not Recovered/Not Resolved]
  - Tearfulness [Not Recovered/Not Resolved]
  - Affect lability [Not Recovered/Not Resolved]
